FAERS Safety Report 17188095 (Version 2)
Quarter: 2019Q4

REPORT INFORMATION
  Report Type: Spontaneous
  Country: CA (occurrence: CA)
  Receive Date: 20191221
  Receipt Date: 20191227
  Transmission Date: 20200122
  Serious: Yes (Other)
  Sender: FDA-Public Use
  Company Number: CA-ACCORD-166249

PATIENT
  Age: 15 Year
  Sex: Male
  Weight: 127 kg

DRUGS (5)
  1. SERTRALINE [Suspect]
     Active Substance: SERTRALINE HYDROCHLORIDE
     Indication: BEHAVIOUR DISORDER
     Dosage: 100 MG QAM?EVERY MORNING
  2. LAMOTRIGINE. [Suspect]
     Active Substance: LAMOTRIGINE
     Indication: BEHAVIOUR DISORDER
     Dosage: QHS, EVERY BEDTIME
  3. QUETIAPINE. [Suspect]
     Active Substance: QUETIAPINE
     Indication: BEHAVIOUR DISORDER
     Dosage: 50MG QHS?QHS, EVERY BEDTIME
  4. CLONIDINE. [Suspect]
     Active Substance: CLONIDINE
     Indication: BEHAVIOUR DISORDER
  5. OLANZAPINE. [Suspect]
     Active Substance: OLANZAPINE
     Indication: BEHAVIOUR DISORDER

REACTIONS (2)
  - Blood prolactin increased [Recovered/Resolved]
  - Overweight [Recovering/Resolving]
